FAERS Safety Report 14832573 (Version 1)
Quarter: 2018Q2

REPORT INFORMATION
  Report Type: Spontaneous
  Country: BR (occurrence: BR)
  Receive Date: 20180501
  Receipt Date: 20180501
  Transmission Date: 20180711
  Serious: Yes (Other)
  Sender: FDA-Public Use
  Company Number: BR-TAKEDA-2018TUS013684

PATIENT
  Age: 29 Year
  Sex: Male
  Weight: 100 kg

DRUGS (1)
  1. DEXILANT [Suspect]
     Active Substance: DEXLANSOPRAZOLE
     Indication: GASTRITIS
     Dosage: UNK, QD
     Route: 048
     Dates: start: 20180411, end: 20180420

REACTIONS (9)
  - Tachycardia [Recovered/Resolved]
  - Off label use [Unknown]
  - Tinnitus [Recovered/Resolved]
  - Vision blurred [Recovered/Resolved]
  - Confusional state [Recovered/Resolved]
  - Migraine [Recovered/Resolved]
  - Vertigo [Recovered/Resolved]
  - Dizziness [Recovering/Resolving]
  - Presyncope [Recovered/Resolved]

NARRATIVE: CASE EVENT DATE: 20180411
